FAERS Safety Report 13373719 (Version 2)
Quarter: 2017Q2

REPORT INFORMATION
  Report Type: Spontaneous
  Country: US (occurrence: US)
  Receive Date: 20170327
  Receipt Date: 20170515
  Transmission Date: 20170830
  Serious: No
  Sender: FDA-Public Use
  Company Number: US-PFIZER INC-2017127120

PATIENT
  Age: 6 Year
  Sex: Male

DRUGS (1)
  1. DYANAVEL XR [Suspect]
     Active Substance: AMPHETAMINE
     Dosage: UNK

REACTIONS (2)
  - Mood altered [Unknown]
  - Depression [Unknown]
